FAERS Safety Report 13026048 (Version 1)
Quarter: 2016Q4

REPORT INFORMATION
  Report Type: Spontaneous
  Country: US (occurrence: US)
  Receive Date: 20161213
  Receipt Date: 20161213
  Transmission Date: 20170207
  Serious: Yes (Other)
  Sender: FDA-Public Use
  Company Number: None

PATIENT
  Age: 65 Year
  Sex: Female
  Weight: 54 kg

DRUGS (6)
  1. YUVAFEM [Suspect]
     Active Substance: ESTRADIOL HEMIHYDRATE
     Indication: GENITOURINARY SYMPTOM
     Dosage: ?          OTHER STRENGTH:MCG;QUANTITY:1 SUPPOSITORY(IES);OTHER FREQUENCY:3-4 TIMES PER WEEK;?
     Route: 067
     Dates: start: 20161116
  2. MULTIVITAMIN [Concomitant]
     Active Substance: VITAMINS
  3. VITAMIN D [Concomitant]
     Active Substance: CHOLECALCIFEROL
  4. YUVAFEM [Suspect]
     Active Substance: ESTRADIOL HEMIHYDRATE
     Indication: MENOPAUSAL SYMPTOMS
     Dosage: ?          OTHER STRENGTH:MCG;QUANTITY:1 SUPPOSITORY(IES);OTHER FREQUENCY:3-4 TIMES PER WEEK;?
     Route: 067
     Dates: start: 20161116
  5. VAGIFEM [Concomitant]
     Active Substance: ESTRADIOL
  6. YUVAFEM [Concomitant]
     Active Substance: ESTRADIOL HEMIHYDRATE

REACTIONS (2)
  - Drug ineffective [None]
  - Product substitution issue [None]

NARRATIVE: CASE EVENT DATE: 20161213
